FAERS Safety Report 17194429 (Version 1)
Quarter: 2019Q4

REPORT INFORMATION
  Report Type: Report from Study
  Country: None (occurrence: US)
  Receive Date: 20191224
  Receipt Date: 20191224
  Transmission Date: 20200122
  Serious: Yes (Other)
  Sender: FDA-Public Use
  Company Number: US-ABBVIE-19K-163-3200866-00

PATIENT
  Age: 32 Year
  Sex: Female

DRUGS (1)
  1. HUMIRA [Suspect]
     Active Substance: ADALIMUMAB
     Indication: CROHN^S DISEASE
     Dosage: CITRATE FREE
     Route: 058

REACTIONS (8)
  - Exostosis [Recovering/Resolving]
  - Procedural headache [Recovering/Resolving]
  - Procedural pain [Unknown]
  - Injection site urticaria [Recovered/Resolved]
  - Vertigo [Not Recovered/Not Resolved]
  - Injection site bruising [Recovered/Resolved]
  - Procedural nausea [Unknown]
  - Injection site pruritus [Recovered/Resolved]

NARRATIVE: CASE EVENT DATE: 201911
